FAERS Safety Report 6923186-3 (Version None)
Quarter: 2010Q3

REPORT INFORMATION
  Report Type: 
  Country: None (occurrence: None)
  Receive Date: 20100813
  Receipt Date: 20100806
  Transmission Date: 20110219
  Serious: Yes (Other)
  Sender: FDA-Public Use
  Company Number: US-ROCHE-713410

PATIENT
  Sex: Female
  Weight: 63 kg

DRUGS (6)
  1. BONIVA [Suspect]
     Indication: OSTEOPENIA
     Dosage: FORM: PILL; TOOK 1 OR 2 DOSES
     Route: 048
     Dates: start: 20100318, end: 20100501
  2. LUNESTA [Concomitant]
  3. PRAVACHOL [Concomitant]
  4. CALCIUM [Concomitant]
  5. BENADRYL [Concomitant]
  6. GLUCOSAMINE [Concomitant]

REACTIONS (5)
  - ARTHRALGIA [None]
  - CHEST DISCOMFORT [None]
  - CONTUSION [None]
  - DIARRHOEA [None]
  - MUSCULOSKELETAL STIFFNESS [None]
